FAERS Safety Report 9870189 (Version 1)
Quarter: 2014Q1

REPORT INFORMATION
  Report Type: Spontaneous
  Country: FR (occurrence: FR)
  Receive Date: 20140205
  Receipt Date: 20140205
  Transmission Date: 20141002
  Serious: Yes (Life-Threatening, Hospitalization)
  Sender: FDA-Public Use
  Company Number: FR-JNJFOC-20140119414

PATIENT
  Age: 50 Year
  Sex: Male

DRUGS (6)
  1. HALDOL DECANOAS [Suspect]
     Indication: PRODUCT USED FOR UNKNOWN INDICATION
     Route: 030
  2. NOZINAN [Interacting]
     Indication: PRODUCT USED FOR UNKNOWN INDICATION
     Route: 048
     Dates: end: 20140106
  3. LEXOMIL [Suspect]
     Indication: PRODUCT USED FOR UNKNOWN INDICATION
     Dosage: 1/4 OF TABLET
     Route: 048
     Dates: end: 20140106
  4. STILNOX [Suspect]
     Indication: PRODUCT USED FOR UNKNOWN INDICATION
     Route: 048
     Dates: end: 20140106
  5. TEMESTA [Suspect]
     Indication: PRODUCT USED FOR UNKNOWN INDICATION
     Route: 048
     Dates: end: 20140106
  6. ZOPICLONE [Suspect]
     Indication: PRODUCT USED FOR UNKNOWN INDICATION
     Route: 065

REACTIONS (4)
  - Coma [Recovered/Resolved]
  - Somnolence [Recovered/Resolved]
  - Intentional overdose [Unknown]
  - Drug interaction [Unknown]
